FAERS Safety Report 9432063 (Version 1)
Quarter: 2013Q3

REPORT INFORMATION
  Report Type: Spontaneous
  Country: TR (occurrence: None)
  Receive Date: 20130726
  Receipt Date: 20130726
  Transmission Date: 20140515
  Serious: Yes (Other)
  Sender: FDA-Public Use
  Company Number: 2013P1012792

PATIENT
  Age: 48 Year
  Sex: Male

DRUGS (1)
  1. PROPYLTHIOURACIL [Suspect]
     Indication: HYPERTHYROIDISM

REACTIONS (4)
  - Nausea [None]
  - Vomiting [None]
  - IgA nephropathy [None]
  - Glomerulonephritis rapidly progressive [None]
